FAERS Safety Report 5968907-1 (Version None)
Quarter: 2008Q4

REPORT INFORMATION
  Report Type: 
  Country: None (occurrence: None)
  Receive Date: 20081125
  Receipt Date: 20081125
  Transmission Date: 20090506
  Serious: Yes (Life-Threatening, Other)
  Sender: FDA-Public Use
  Company Number: None

PATIENT
  Sex: Female
  Weight: 93.441 kg

DRUGS (1)
  1. FACTIVE [Suspect]
     Indication: RESPIRATORY TRACT INFECTION
     Dosage: 320MG QDX7 DAYS PO
     Route: 048
     Dates: start: 20080129, end: 20080205

REACTIONS (20)
  - DIABETES MELLITUS [None]
  - DIARRHOEA [None]
  - HYPERLIPIDAEMIA [None]
  - HYPERPARATHYROIDISM [None]
  - HYPOCALCAEMIA [None]
  - MUCOUS MEMBRANE DISORDER [None]
  - MUSCLE RUPTURE [None]
  - MUSCLE SPASMS [None]
  - MUSCLE TWITCHING [None]
  - MUSCULAR WEAKNESS [None]
  - MYODESOPSIA [None]
  - PHOTOPSIA [None]
  - RASH ERYTHEMATOUS [None]
  - RASH GENERALISED [None]
  - RECTAL FISSURE [None]
  - ROTATOR CUFF SYNDROME [None]
  - TENDONITIS [None]
  - TREMOR [None]
  - VISUAL FIELD DEFECT [None]
  - VITAMIN D DEFICIENCY [None]
